FAERS Safety Report 20834170 (Version 1)
Quarter: 2022Q2

REPORT INFORMATION
  Report Type: Spontaneous
  Country: US (occurrence: None)
  Receive Date: 20220514
  Receipt Date: 20220514
  Transmission Date: 20220721
  Serious: Yes (Life-Threatening)
  Sender: FDA-Public Use
  Company Number: None

PATIENT
  Age: 57 Year
  Sex: Female
  Weight: 83.25 kg

DRUGS (1)
  1. ALENDRONATE [Suspect]
     Active Substance: ALENDRONATE SODIUM
     Indication: Ankle operation
     Dosage: OTHER QUANTITY : 1 TABLET(S);?OTHER FREQUENCY : WEEKLY;?
     Route: 048
     Dates: start: 20211020, end: 20220509

REACTIONS (7)
  - Pharyngeal swelling [None]
  - Oropharyngeal blistering [None]
  - Oropharyngeal pain [None]
  - Ear pain [None]
  - Rhinalgia [None]
  - Throat tightness [None]
  - Gingival swelling [None]

NARRATIVE: CASE EVENT DATE: 20220420
